FAERS Safety Report 13035853 (Version 1)
Quarter: 2016Q4

REPORT INFORMATION
  Report Type: Spontaneous
  Country: US (occurrence: US)
  Receive Date: 20161216
  Receipt Date: 20161216
  Transmission Date: 20170207
  Serious: No
  Sender: FDA-Public Use
  Company Number: US-PFIZER INC-2016573384

PATIENT
  Sex: Female

DRUGS (1)
  1. XELJANZ XR [Suspect]
     Active Substance: TOFACITINIB CITRATE
     Indication: RHEUMATOID ARTHRITIS
     Dosage: 11 MG, DAILY

REACTIONS (7)
  - Respiratory tract congestion [Unknown]
  - Insomnia [Unknown]
  - Neck pain [Unknown]
  - Cough [Unknown]
  - Weight increased [Unknown]
  - Drug ineffective [Unknown]
  - Arthralgia [Unknown]
